FAERS Safety Report 10597466 (Version 1)
Quarter: 2014Q4

REPORT INFORMATION
  Report Type: Spontaneous
  Country: US (occurrence: None)
  Receive Date: 20141120
  Receipt Date: 20141120
  Transmission Date: 20150529
  Serious: Yes (Death)
  Sender: FDA-Public Use
  Company Number: None

PATIENT

DRUGS (1)
  1. EVICEL [Suspect]
     Active Substance: FIBRINOGEN HUMAN\THROMBIN HUMAN

REACTIONS (7)
  - Device malfunction [None]
  - Product quality issue [None]
  - Nerve compression [None]
  - PCO2 increased [None]
  - Embolism [None]
  - Musculoskeletal pain [None]
  - Intra-abdominal pressure increased [None]
